FAERS Safety Report 21260579 (Version 2)
Quarter: 2022Q4

REPORT INFORMATION
  Report Type: Spontaneous
  Country: DE (occurrence: DE)
  Receive Date: 20220826
  Receipt Date: 20221012
  Transmission Date: 20230113
  Serious: Yes (Hospitalization, Other)
  Sender: FDA-Public Use
  Company Number: DE-NOVARTISPH-NVSC2022DE177891

PATIENT
  Sex: Female
  Weight: 74 kg

DRUGS (5)
  1. BEOVU [Suspect]
     Active Substance: BROLUCIZUMAB-DBLL
     Indication: Neovascular age-related macular degeneration
     Dosage: UNK, Q4W
     Route: 031
     Dates: start: 20211223, end: 2022
  2. BEOVU [Suspect]
     Active Substance: BROLUCIZUMAB-DBLL
     Dosage: UNK
     Route: 065
     Dates: start: 2022
  3. BEOVU [Suspect]
     Active Substance: BROLUCIZUMAB-DBLL
     Dosage: UNK
     Route: 065
     Dates: start: 20220120
  4. BEOVU [Suspect]
     Active Substance: BROLUCIZUMAB-DBLL
     Dosage: UNK
     Route: 065
     Dates: start: 20220217
  5. BEOVU [Suspect]
     Active Substance: BROLUCIZUMAB-DBLL
     Dosage: UNK (LAST APPLICATION PRIOR TO THE EVENT) (THE FOURTH BEOVU INJECTION)(EVERY 12 WEEK)
     Route: 031
     Dates: start: 20220512

REACTIONS (14)
  - Iridocyclitis [Unknown]
  - Vision blurred [Recovered/Resolved]
  - Iridocyclitis [Recovered/Resolved]
  - Retinal ischaemia [Recovering/Resolving]
  - Uveitis [Not Recovered/Not Resolved]
  - Intraocular pressure increased [Unknown]
  - Visual impairment [Unknown]
  - Eye pain [Unknown]
  - Carotid artery disease [Unknown]
  - Hypopyon [Unknown]
  - Keratic precipitates [Not Recovered/Not Resolved]
  - Arteriosclerosis [Unknown]
  - Anterior chamber cell [Not Recovered/Not Resolved]
  - Eye oedema [Unknown]

NARRATIVE: CASE EVENT DATE: 20220515
